FAERS Safety Report 20918943 (Version 1)
Quarter: 2022Q2

REPORT INFORMATION
  Report Type: Spontaneous
  Country: US (occurrence: US)
  Receive Date: 20220606
  Receipt Date: 20220606
  Transmission Date: 20220721
  Serious: No
  Sender: FDA-Public Use
  Company Number: US-GALDERMA-US2022007266

PATIENT

DRUGS (4)
  1. PROACTIV MD ADAPALENE ACNE TREATMENT [Suspect]
     Active Substance: ADAPALENE
     Indication: Scar
     Dosage: 1 DOSAGE FORM, BID
     Route: 061
     Dates: start: 202204, end: 202205
  2. Proactiv MD Ultra Gentle Cleanser [Concomitant]
     Indication: Scar
     Dosage: 1 DOSAGE FORM, BID
     Route: 061
     Dates: start: 202204, end: 202205
  3. Proactiv MD Ultra Hydrating Moisturizer [Concomitant]
     Indication: Scar
     Dosage: 1 DOSAGE FORM, BID
     Route: 061
     Dates: start: 202204, end: 202205
  4. Proactiv Post Acne Scar Gel [Concomitant]
     Indication: Scar
     Dosage: 1 DOSAGE FORM, BID
     Route: 061
     Dates: start: 202204, end: 202205

REACTIONS (6)
  - Skin irritation [Recovered/Resolved]
  - Skin swelling [Recovered/Resolved]
  - Erythema [Recovered/Resolved]
  - Inappropriate schedule of product administration [Recovered/Resolved]
  - Overdose [Recovered/Resolved]
  - Product use in unapproved indication [Recovered/Resolved]

NARRATIVE: CASE EVENT DATE: 20220401
